FAERS Safety Report 5965978-3 (Version None)
Quarter: 2008Q4

REPORT INFORMATION
  Report Type: 
  Country: None (occurrence: None)
  Receive Date: 20081125
  Receipt Date: 20081121
  Transmission Date: 20090506
  Serious: Yes (Other)
  Sender: FDA-Public Use
  Company Number: GR-ABBOTT-08P-066-0489218-00

PATIENT

DRUGS (1)
  1. KLARICID IV [Suspect]
     Indication: DRUG USE FOR UNKNOWN INDICATION
     Dosage: 2 IN 1 DAY (3 TOTAL DOSES)
     Route: 042
     Dates: start: 20080601, end: 20080601

REACTIONS (1)
  - THROMBOPHLEBITIS SUPERFICIAL [None]
